FAERS Safety Report 10765414 (Version 1)
Quarter: 2015Q1

REPORT INFORMATION
  Report Type: Spontaneous
  Country: US (occurrence: None)
  Receive Date: 20150204
  Receipt Date: 20150204
  Transmission Date: 20150721
  Serious: Yes (Other)
  Sender: FDA-Public Use
  Company Number: None

PATIENT
  Age: 54 Year
  Sex: Female

DRUGS (1)
  1. STIVARGA [Suspect]
     Active Substance: REGORAFENIB
     Indication: COLON CANCER
     Dosage: 4 TABLETS, DAILY FOR @! DAYS EVERY, ORAL
     Route: 048
     Dates: start: 20140928, end: 20141126

REACTIONS (2)
  - Thyroid disorder [None]
  - Liver function test abnormal [None]

NARRATIVE: CASE EVENT DATE: 20141126
